FAERS Safety Report 8523324-5 (Version None)
Quarter: 2012Q3

REPORT INFORMATION
  Report Type: 
  Country: None (occurrence: None)
  Receive Date: 20120720
  Receipt Date: 20120710
  Transmission Date: 20120928
  Serious: Yes (Death, Hospitalization)
  Sender: FDA-Public Use
  Company Number: FR-BRISTOL-MYERS SQUIBB COMPANY-16760019

PATIENT
  Age: 90 Year
  Sex: Female

DRUGS (5)
  1. NEBIVOLOL [Concomitant]
  2. ALDACTONE [Concomitant]
  3. LASIX [Concomitant]
  4. ENALAPRIL MALEATE [Concomitant]
  5. COUMADIN [Suspect]
     Route: 048

REACTIONS (4)
  - INTERNATIONAL NORMALISED RATIO INCREASED [None]
  - HAEMORRHAGE [None]
  - CARDIAC FAILURE [None]
  - SEPSIS [None]
